FAERS Safety Report 4532683-X (Version None)
Quarter: 2004Q4

REPORT INFORMATION
  Report Type: 
  Country: None (occurrence: None)
  Receive Date: 20041221
  Receipt Date: 20041124
  Transmission Date: 20050328
  Serious: Yes (Other)
  Sender: FDA-Public Use
  Company Number: PHBS2004BR15951

PATIENT
  Age: 29 Year
  Weight: 50 kg

DRUGS (2)
  1. CATAFLAM [Suspect]
     Indication: RHINITIS
     Dosage: 50 MG, Q12H
     Route: 048
     Dates: start: 20041122, end: 20041123
  2. MERCILON [Concomitant]
     Indication: CONTRACEPTION
     Dosage: 1 DF, QD
     Route: 048

REACTIONS (6)
  - INSOMNIA [None]
  - OROPHARYNGEAL SWELLING [None]
  - PALPITATIONS [None]
  - PYREXIA [None]
  - SWOLLEN TONGUE [None]
  - TREMOR [None]
